FAERS Safety Report 18637892 (Version 1)
Quarter: 2020Q4

REPORT INFORMATION
  Report Type: Spontaneous
  Country: US (occurrence: US)
  Receive Date: 20201219
  Receipt Date: 20201219
  Transmission Date: 20210114
  Serious: Yes (Hospitalization, Other)
  Sender: FDA-Public Use
  Company Number: US-MACLEODS PHARMACEUTICALS US LTD-MAC2020029476

PATIENT

DRUGS (2)
  1. PIPERACILLIN AND TAZOBACTAM [Concomitant]
     Active Substance: PIPERACILLIN SODIUM\TAZOBACTAM SODIUM
     Indication: PRODUCT USED FOR UNKNOWN INDICATION
     Dosage: 4.5 GRAM, TID (Q8H)
     Route: 042
  2. OSELTAMIVIR 75MG [Suspect]
     Active Substance: OSELTAMIVIR
     Indication: INFLUENZA
     Dosage: 75 MILLIGRAM, BID (Q12H)
     Route: 048

REACTIONS (5)
  - Drug resistance [Unknown]
  - Hypoxia [Unknown]
  - Clostridium difficile infection [Unknown]
  - Treatment failure [Unknown]
  - Malignant neoplasm progression [Unknown]
